FAERS Safety Report 11667242 (Version 1)
Quarter: 2015Q4

REPORT INFORMATION
  Report Type: Report from Study
  Country: AU (occurrence: AU)
  Receive Date: 20151027
  Receipt Date: 20151027
  Transmission Date: 20160304
  Serious: Yes (Other)
  Sender: FDA-Public Use
  Company Number: AU-KADMON PHARMACEUTICALS, LLC-KAD201501-000112

PATIENT
  Age: 53 Year
  Sex: Female
  Weight: 98.9 kg

DRUGS (4)
  1. ABT-450/RITONAVIR/ABT-267 [Suspect]
     Active Substance: OMBITASVIR\PARITAPREVIR\RITONAVIR
     Indication: HEPATITIS C
     Dosage: TABLET
     Route: 048
     Dates: start: 20141121, end: 20141205
  2. ABT-333 [Suspect]
     Active Substance: DASABUVIR
     Indication: HEPATITIS C
     Dosage: TABLET
     Route: 048
     Dates: start: 20141121, end: 20141205
  3. RABEPRAZOLE 20 MG [Concomitant]
     Dosage: 3 MONTHS PRIOR TO THERAPY
  4. RIBAVIRIN. [Suspect]
     Active Substance: RIBAVIRIN
     Indication: HEPATITIS C
     Dosage: TABLET
     Route: 048
     Dates: start: 20141121, end: 20141205

REACTIONS (6)
  - International normalised ratio increased [Unknown]
  - Oedema peripheral [Recovered/Resolved]
  - Hyperbilirubinaemia [Recovering/Resolving]
  - Hypoalbuminaemia [Recovering/Resolving]
  - Weight increased [Recovered/Resolved]
  - Drug-induced liver injury [Unknown]

NARRATIVE: CASE EVENT DATE: 20141226
